FAERS Safety Report 7776350-8 (Version None)
Quarter: 2011Q3

REPORT INFORMATION
  Report Type: 
  Country: None (occurrence: None)
  Receive Date: 20110921
  Receipt Date: 20110921
  Transmission Date: 20111222
  Serious: Yes (Other)
  Sender: FDA-Public Use
  Company Number: None

PATIENT
  Age: 60 Year
  Sex: Female
  Weight: 67.1324 kg

DRUGS (2)
  1. ACTEMRA [Suspect]
     Indication: RHEUMATOID ARTHRITIS
     Dosage: 280 MG 1X MONTH IV
     Route: 042
     Dates: start: 20110822
  2. ACTEMRA [Suspect]
     Indication: RHEUMATOID ARTHRITIS
     Dosage: 280 MG 1X MONTH IV
     Route: 042
     Dates: start: 20110727

REACTIONS (3)
  - STOMATITIS [None]
  - LEUKOPENIA [None]
  - NEUTROPENIA [None]
